FAERS Safety Report 15243316 (Version 1)
Quarter: 2018Q3

REPORT INFORMATION
  Report Type: Spontaneous
  Country: US (occurrence: US)
  Receive Date: 20180712
  Receipt Date: 20180712
  Transmission Date: 20181010
  Serious: No
  Sender: FDA-Public Use
  Company Number: None

PATIENT
  Age: 46 Year
  Sex: Male

DRUGS (1)
  1. MYCOPHENOLATE MOF TAB 500MG [Suspect]
     Active Substance: MYCOPHENOLATE MOFETIL
     Dates: start: 20180531, end: 20180712

REACTIONS (4)
  - Back pain [None]
  - Constipation [None]
  - Neuropathy peripheral [None]
  - Diarrhoea [None]

NARRATIVE: CASE EVENT DATE: 20180712
